FAERS Safety Report 9790239 (Version 2)
Quarter: 2013Q4

REPORT INFORMATION
  Report Type: Spontaneous
  Country: US (occurrence: US)
  Receive Date: 20131231
  Receipt Date: 20131231
  Transmission Date: 20140711
  Serious: Yes (Hospitalization, Other)
  Sender: FDA-Public Use
  Company Number: US-009507513-2010SP054447

PATIENT
  Sex: Female
  Weight: 81.65 kg

DRUGS (3)
  1. NUVARING [Suspect]
     Indication: CONTRACEPTION
     Dates: start: 20080602, end: 20081018
  2. NUVARING [Suspect]
     Indication: PREMENSTRUAL SYNDROME
  3. MOTRIN [Concomitant]
     Indication: MYALGIA
     Dates: start: 1990

REACTIONS (8)
  - Pulmonary mass [Unknown]
  - Pulmonary embolism [Unknown]
  - Panic attack [Not Recovered/Not Resolved]
  - Leiomyoma [Unknown]
  - Muscle spasms [Unknown]
  - Vaginal haemorrhage [Unknown]
  - Nausea [Unknown]
  - Off label use [Unknown]
